FAERS Safety Report 11074714 (Version 1)
Quarter: 2015Q2

REPORT INFORMATION
  Report Type: Spontaneous
  Country: US (occurrence: US)
  Receive Date: 20150429
  Receipt Date: 20150429
  Transmission Date: 20150821
  Serious: Yes (Hospitalization, Other)
  Sender: FDA-Public Use
  Company Number: US-SUN PHARMACEUTICAL INDUSTRIES LTD-2015SUN01043

PATIENT
  Age: 77 Year
  Sex: Female

DRUGS (3)
  1. NAB-PACLITAXEL [Suspect]
     Active Substance: PACLITAXEL
     Indication: ADENOCARCINOMA PANCREAS
     Dosage: 125 MG/M2, (DAYS 1,8 AND 15)
     Route: 065
     Dates: start: 20130807
  2. GEMCITABINE [Suspect]
     Active Substance: GEMCITABINE\GEMCITABINE HYDROCHLORIDE
     Dosage: 1900 MG/M2, UNK
     Route: 065
     Dates: start: 20131023, end: 20140210
  3. GEMCITABINE [Suspect]
     Active Substance: GEMCITABINE\GEMCITABINE HYDROCHLORIDE
     Indication: ADENOCARCINOMA PANCREAS
     Dosage: 1000 MG/M2, (DAYS 1, 8 AND 15)
     Route: 065
     Dates: start: 20130807

REACTIONS (9)
  - Thrombocytopenia [Unknown]
  - Rash [Unknown]
  - Pulmonary oedema [Recovering/Resolving]
  - Pleural effusion [Recovering/Resolving]
  - Cardiac failure congestive [Recovered/Resolved]
  - Anaemia [Unknown]
  - Pneumonia [Recovering/Resolving]
  - Gastrointestinal haemorrhage [Unknown]
  - Condition aggravated [Recovered/Resolved]

NARRATIVE: CASE EVENT DATE: 2013
